FAERS Safety Report 6710026-0 (Version None)
Quarter: 2010Q2

REPORT INFORMATION
  Report Type: 
  Country: None (occurrence: None)
  Receive Date: 20100430
  Receipt Date: 20100422
  Transmission Date: 20101027
  Serious: Yes (Death)
  Sender: FDA-Public Use
  Company Number: APP201000290

PATIENT
  Age: 5 Year
  Sex: Female
  Weight: 17.57 kg

DRUGS (4)
  1. PROPOFOL [Suspect]
     Indication: DENTAL CARE
     Dosage: INTRAVENOUS
     Route: 042
     Dates: start: 20091103, end: 20091103
  2. ULTANE [Suspect]
     Indication: DENTAL CARE
     Dosage: INHALATION
     Dates: start: 20091103
  3. CEFAZOLIN SODIUM [Concomitant]
  4. FENTANYL-100 [Concomitant]

REACTIONS (1)
  - HYPERTHERMIA MALIGNANT [None]
